FAERS Safety Report 6992143-3 (Version None)
Quarter: 2010Q3

REPORT INFORMATION
  Report Type: 
  Country: None (occurrence: None)
  Receive Date: 20100917
  Receipt Date: 20100910
  Transmission Date: 20110219
  Serious: Yes (Hospitalization)
  Sender: FDA-Public Use
  Company Number: DE-ASTRAZENECA-2009PK00363

PATIENT
  Age: 80 Year
  Sex: Female
  Weight: 70 kg

DRUGS (7)
  1. METOPROLOL SUCCINATE [Suspect]
     Indication: HYPERTENSION
     Route: 048
  2. DELMUNO [Suspect]
     Indication: HYPERTENSION
     Dosage: 1 DF=5MG RAMIPRIL UND 5MG FELODIPIN, 1 DF TWO TIMES A DAY
     Route: 048
     Dates: start: 20080730
  3. MOXONIDINE [Suspect]
     Indication: HYPERTENSION
     Route: 048
     Dates: start: 20080730
  4. ALDACTONE [Suspect]
     Indication: HYPERTENSION
     Route: 048
     Dates: end: 20080825
  5. PANTOPRAZOLE SODIUM [Concomitant]
     Indication: REFLUX OESOPHAGITIS
     Route: 048
  6. FERROUS SULFATE TAB [Concomitant]
     Indication: IRON DEFICIENCY ANAEMIA
     Route: 048
  7. DIGITOXIN [Concomitant]
     Indication: CARDIAC FAILURE
     Route: 048
     Dates: end: 20080826

REACTIONS (3)
  - HYPERKALAEMIA [None]
  - HYPONATRAEMIA [None]
  - SYNCOPE [None]
